FAERS Safety Report 4662793-8 (Version None)
Quarter: 2005Q2

REPORT INFORMATION
  Report Type: 
  Country: None (occurrence: None)
  Receive Date: 20050512
  Receipt Date: 20050421
  Transmission Date: 20051028
  Serious: Yes (Hospitalization)
  Sender: FDA-Public Use
  Company Number: FR_050406285

PATIENT
  Age: 60 Year
  Sex: Female

DRUGS (3)
  1. ZYPREXA [Suspect]
     Indication: MANIA
     Dosage: 20 MG DAY
     Dates: start: 20041206
  2. TEGRETOL (CARBAMAZEPINE RIVOPHARM) [Concomitant]
  3. LITHIUM CARBONATE [Concomitant]

REACTIONS (10)
  - ARTHRALGIA [None]
  - AZOTAEMIA [None]
  - CARDIAC DISCOMFORT [None]
  - CONDITION AGGRAVATED [None]
  - EYELID OEDEMA [None]
  - HYPERTENSIVE CRISIS [None]
  - MANIA [None]
  - OEDEMA PERIPHERAL [None]
  - TREATMENT NONCOMPLIANCE [None]
  - VENTRICULAR HYPERTROPHY [None]
